FAERS Safety Report 9366559 (Version 1)
Quarter: 2013Q2

REPORT INFORMATION
  Report Type: Spontaneous
  Country: GB (occurrence: None)
  Receive Date: 20130620
  Receipt Date: 20130620
  Transmission Date: 20140414
  Serious: Yes (Disabling)
  Sender: FDA-Public Use
  Company Number: GER/UKI/13/0030020

PATIENT
  Age: 70 Year
  Sex: Female

DRUGS (4)
  1. IRBESARTAN [Suspect]
     Indication: HYPERTENSION
     Dosage: 1 IN 1 D
     Route: 048
  2. BENDROFLUMETHIAZIDE [Concomitant]
  3. DOXYCYCLINE [Concomitant]
  4. OMEPRAZOLE [Concomitant]

REACTIONS (4)
  - Musculoskeletal pain [None]
  - Activities of daily living impaired [None]
  - Impaired driving ability [None]
  - Gait disturbance [None]
